FAERS Safety Report 13452641 (Version 2)
Quarter: 2017Q2

REPORT INFORMATION
  Report Type: Spontaneous
  Country: FR (occurrence: FR)
  Receive Date: 20170418
  Receipt Date: 20170425
  Transmission Date: 20170830
  Serious: Yes (Hospitalization)
  Sender: FDA-Public Use
  Company Number: FR-B.I. PHARMACEUTICALS,INC./RIDGEFIELD-2017-BI-021441

PATIENT
  Age: 65 Year
  Sex: Female

DRUGS (1)
  1. PRADAXA [Suspect]
     Active Substance: DABIGATRAN ETEXILATE MESYLATE
     Indication: ATRIAL FIBRILLATION
     Route: 048
     Dates: end: 201704

REACTIONS (4)
  - General physical health deterioration [Not Recovered/Not Resolved]
  - Coagulation test abnormal [Unknown]
  - Acute kidney injury [Not Recovered/Not Resolved]
  - Monoclonal gammopathy [Unknown]

NARRATIVE: CASE EVENT DATE: 201704
